FAERS Safety Report 7814962-3 (Version None)
Quarter: 2011Q4

REPORT INFORMATION
  Report Type: 
  Country: None (occurrence: None)
  Receive Date: 20111014
  Receipt Date: 20111013
  Transmission Date: 20120403
  Serious: Yes (Death, Other)
  Sender: FDA-Public Use
  Company Number: SE-PFIZER INC-2011030901

PATIENT
  Age: 31 Year
  Sex: Male

DRUGS (2)
  1. VARENICLINE TARTRATE [Suspect]
     Indication: SMOKING CESSATION THERAPY
     Dosage: UNK
     Route: 048
     Dates: start: 20100628
  2. NEBIDO [Concomitant]
     Dosage: UNK

REACTIONS (4)
  - AGGRESSION [None]
  - PERSONALITY CHANGE [None]
  - COMPLETED SUICIDE [None]
  - MENTAL DISORDER [None]
